FAERS Safety Report 10009730 (Version 2)
Quarter: 2014Q1

REPORT INFORMATION
  Report Type: Spontaneous
  Country: US (occurrence: US)
  Receive Date: 20140312
  Receipt Date: 20140312
  Transmission Date: 20141002
  Serious: No
  Sender: FDA-Public Use
  Company Number: US-INCYTE CORPORATION-2012IN002351

PATIENT
  Sex: Female
  Weight: 67.57 kg

DRUGS (13)
  1. JAKAFI [Suspect]
     Indication: POLYCYTHAEMIA VERA
     Dosage: 15 MG, BID
     Route: 048
     Dates: start: 20120127
  2. JAKAFI [Suspect]
     Indication: MYELOFIBROSIS
  3. AMLODIPINE [Concomitant]
     Dosage: UNK, QD
  4. HYDREA [Concomitant]
     Dosage: UNK, QD
  5. LASIX [Concomitant]
     Dosage: UNK, QD
  6. KLOR-CON [Concomitant]
     Dosage: UNK, QD
  7. COUMADIN [Concomitant]
     Dosage: UNK, QD
  8. CITRACAL [Concomitant]
     Dosage: UNK, QD
  9. BELLADONNA AND DERIVATIVES [Concomitant]
     Dosage: UNK, QD
  10. OMEPRAZOLE [Concomitant]
     Dosage: UNK, QD
  11. METOPROLOL [Concomitant]
  12. GABAPENTIN [Concomitant]
  13. EDARBI [Concomitant]

REACTIONS (3)
  - Rash [Not Recovered/Not Resolved]
  - Skin swelling [Not Recovered/Not Resolved]
  - Weight increased [Not Recovered/Not Resolved]
